FAERS Safety Report 15314889 (Version 1)
Quarter: 2018Q3

REPORT INFORMATION
  Report Type: Spontaneous
  Country: US (occurrence: US)
  Receive Date: 20180815
  Receipt Date: 20180815
  Transmission Date: 20181010
  Serious: Yes (Hospitalization)
  Sender: FDA-Public Use
  Company Number: None

PATIENT
  Age: 70 Year
  Sex: Female
  Weight: 63.5 kg

DRUGS (1)
  1. YESCARTA [Suspect]
     Active Substance: AXICABTAGENE CILOLEUCEL
     Indication: DIFFUSE LARGE B-CELL LYMPHOMA
     Dosage: 2X10 (6) PER/KG WITH MAX 2X10 (8)
     Route: 042
     Dates: start: 20180702

REACTIONS (9)
  - Neutropenia [None]
  - Anaemia [None]
  - Cytomegalovirus infection [None]
  - Cognitive disorder [None]
  - Transaminases increased [None]
  - Cytokine release syndrome [None]
  - Thrombocytopenia [None]
  - Encephalopathy [None]
  - Agitation [None]
